FAERS Safety Report 18916641 (Version 4)
Quarter: 2021Q1

REPORT INFORMATION
  Report Type: Spontaneous
  Country: CO (occurrence: CO)
  Receive Date: 20210219
  Receipt Date: 20210311
  Transmission Date: 20210420
  Serious: Yes (Hospitalization, Other)
  Sender: FDA-Public Use
  Company Number: CO-PFIZER INC-2021154620

PATIENT
  Age: 16 Year
  Sex: Male

DRUGS (2)
  1. AMLODIPINE BESILATE [Suspect]
     Active Substance: AMLODIPINE BESYLATE
     Indication: PAIN
     Dosage: 60 MG (10MG, 6 TABLETS)
     Route: 048
  2. ACETAMINOPHEN. [Concomitant]
     Active Substance: ACETAMINOPHEN
     Indication: PAIN
     Dosage: 2000 MG

REACTIONS (2)
  - Toxicity to various agents [Recovering/Resolving]
  - Non-cardiogenic pulmonary oedema [Recovering/Resolving]
